FAERS Safety Report 9363760 (Version 5)
Quarter: 2013Q4

REPORT INFORMATION
  Report Type: Spontaneous
  Country: US (occurrence: US)
  Receive Date: 20130624
  Receipt Date: 20131114
  Transmission Date: 20140711
  Serious: Yes (Hospitalization, Disabling, Other)
  Sender: FDA-Public Use
  Company Number: US-009507513-1205USA02256

PATIENT
  Sex: Female
  Weight: 63.86 kg

DRUGS (10)
  1. FOSAMAX [Suspect]
     Indication: OSTEOPOROSIS
     Dosage: 10 MG, QD
     Route: 048
     Dates: start: 19960604, end: 2012
  2. FOSAMAX [Suspect]
     Indication: OSTEOPENIA
     Dosage: 70 MG, QW
     Route: 048
     Dates: start: 20040112
  3. FOSAMAX [Suspect]
     Indication: OSTEOPOROSIS
     Dosage: UNK
     Route: 048
     Dates: start: 1995, end: 200610
  4. LEVOXYL [Concomitant]
     Indication: PRIMARY HYPOTHYROIDISM
     Dosage: 0.075-0.125 MG, QAM
     Route: 048
     Dates: start: 199605
  5. PROVERA [Concomitant]
     Indication: PREMATURE MENOPAUSE
     Dosage: 2.5 MG, QD
     Route: 048
  6. PREMARIN [Concomitant]
     Indication: PREMATURE MENOPAUSE
     Dosage: 0.625 MG, QD
     Route: 048
     Dates: start: 1998
  7. CALCIUM (UNSPECIFIED) [Concomitant]
     Indication: OSTEOPOROSIS
     Dosage: 1200-1800 MG, QD
  8. SYNTHROID [Concomitant]
     Indication: PRIMARY HYPOTHYROIDISM
     Dosage: 0.88-0.125 MG, QAM
     Route: 048
  9. VITAMIN D (UNSPECIFIED) [Concomitant]
     Indication: OSTEOPOROSIS
     Dosage: 400-1325 IU
  10. ACTONEL [Concomitant]
     Indication: OSTEOPENIA
     Dosage: 35 MG, QW
     Route: 048
     Dates: start: 20051216

REACTIONS (39)
  - Intramedullary rod insertion [Unknown]
  - Osteoporosis [Unknown]
  - Stress fracture [Unknown]
  - Bone graft [Unknown]
  - Low turnover osteopathy [Unknown]
  - Femur fracture [Not Recovered/Not Resolved]
  - Hand fracture [Unknown]
  - Vitamin D deficiency [Unknown]
  - Calcium deficiency [Unknown]
  - Musculoskeletal disorder [Unknown]
  - Fatigue [Unknown]
  - Night sweats [Unknown]
  - Fall [Unknown]
  - Carpal tunnel decompression [Unknown]
  - Blood pressure increased [Unknown]
  - Hypercholesterolaemia [Unknown]
  - Choking sensation [Unknown]
  - Upper limb fracture [Unknown]
  - Wrist fracture [Unknown]
  - Dry skin [Unknown]
  - Paraesthesia [Unknown]
  - Tooth extraction [Unknown]
  - Hyperthyroidism [Unknown]
  - Oral infection [Recovering/Resolving]
  - Fall [Unknown]
  - Impaired fasting glucose [Unknown]
  - Stress [Unknown]
  - Nephropathy [Unknown]
  - Endodontic procedure [Unknown]
  - Fall [Unknown]
  - Sinusitis [Unknown]
  - Amenorrhoea [Recovered/Resolved]
  - Swelling [Unknown]
  - Tenderness [Unknown]
  - Withdrawal bleed [Unknown]
  - Neck pain [Unknown]
  - Arthralgia [Unknown]
  - Back pain [Unknown]
  - Myalgia [Unknown]
